FAERS Safety Report 16571597 (Version 1)
Quarter: 2019Q3

REPORT INFORMATION
  Report Type: Spontaneous
  Country: US (occurrence: US)
  Receive Date: 20190715
  Receipt Date: 20190715
  Transmission Date: 20191004
  Serious: Yes (Other)
  Sender: FDA-Public Use
  Company Number: US-009507513-1907USA004337

PATIENT
  Sex: Male

DRUGS (2)
  1. DIFICID [Suspect]
     Active Substance: FIDAXOMICIN
     Indication: CLOSTRIDIUM DIFFICILE INFECTION
     Dosage: UNK MILLIGRAM
     Route: 048
     Dates: start: 20190705
  2. VANCOMYCIN [Suspect]
     Active Substance: VANCOMYCIN
     Route: 048

REACTIONS (4)
  - Clostridium difficile infection [Not Recovered/Not Resolved]
  - Incontinence [Not Recovered/Not Resolved]
  - Haemorrhage [Not Recovered/Not Resolved]
  - Pain [Not Recovered/Not Resolved]

NARRATIVE: CASE EVENT DATE: 201907
